FAERS Safety Report 21642773 (Version 1)
Quarter: 2022Q4

REPORT INFORMATION
  Report Type: Spontaneous
  Country: US (occurrence: US)
  Receive Date: 20221125
  Receipt Date: 20221125
  Transmission Date: 20230113
  Serious: No
  Sender: FDA-Public Use
  Company Number: US-BEH-2022152098

PATIENT
  Sex: Female

DRUGS (1)
  1. HIZENTRA [Suspect]
     Active Substance: HUMAN IMMUNOGLOBULIN G
     Indication: Systemic lupus erythematosus
     Dosage: 20 GRAM, QW
     Route: 058
     Dates: start: 20220427

REACTIONS (8)
  - Infusion site swelling [Unknown]
  - Infusion site bruising [Unknown]
  - Infusion site haemorrhage [Unknown]
  - Lack of infusion site rotation [Unknown]
  - Scar [Unknown]
  - Tremor [Unknown]
  - No adverse event [Unknown]
  - Off label use [Unknown]
